FAERS Safety Report 10060751 (Version 1)
Quarter: 2014Q2

REPORT INFORMATION
  Report Type: Report from Study
  Country: CA (occurrence: CA)
  Receive Date: 20140404
  Receipt Date: 20140404
  Transmission Date: 20141212
  Serious: Yes (Other)
  Sender: FDA-Public Use
  Company Number: CA-ABBVIE-14P-028-1219454-00

PATIENT
  Age: 59 Year
  Sex: Female

DRUGS (4)
  1. HUMIRA [Suspect]
     Indication: PSORIATIC ARTHROPATHY
     Route: 058
     Dates: start: 20101230, end: 201305
  2. HUMIRA [Suspect]
     Route: 058
     Dates: start: 201306
  3. ESTROGEN [Suspect]
     Indication: PRODUCT USED FOR UNKNOWN INDICATION
  4. METADOXINE [Concomitant]
     Indication: PRODUCT USED FOR UNKNOWN INDICATION

REACTIONS (3)
  - Osteoarthritis [Recovered/Resolved]
  - Arthritis [Recovered/Resolved]
  - Pulmonary thrombosis [Recovered/Resolved]
